FAERS Safety Report 8243332-1 (Version None)
Quarter: 2012Q1

REPORT INFORMATION
  Report Type: 
  Country: None (occurrence: None)
  Receive Date: 20120329
  Receipt Date: 20120323
  Transmission Date: 20120608
  Serious: Yes (Other)
  Sender: FDA-Public Use
  Company Number: CL-ROCHE-1050270

PATIENT
  Sex: Female
  Weight: 46 kg

DRUGS (4)
  1. CLONAZEPAM [Concomitant]
     Indication: PANIC ATTACK
     Route: 048
  2. PEGINTERFERON ALFA-2A [Suspect]
     Indication: HEPATITIS C
     Route: 058
     Dates: start: 20110628
  3. COPEGUS [Suspect]
     Indication: HEPATITIS C
     Route: 048
     Dates: start: 20110628
  4. SERTRALINE HYDROCHLORIDE [Concomitant]
     Indication: PANIC ATTACK
     Route: 048

REACTIONS (10)
  - WHITE BLOOD CELL COUNT DECREASED [None]
  - TONGUE DISORDER [None]
  - EAR PAIN [None]
  - HEADACHE [None]
  - GOITRE [None]
  - GLOSSODYNIA [None]
  - OROPHARYNGEAL PAIN [None]
  - HYPERSENSITIVITY [None]
  - DERMATITIS [None]
  - DIZZINESS [None]
